FAERS Safety Report 4522258-0 (Version None)
Quarter: 2004Q4

REPORT INFORMATION
  Report Type: 
  Country: None (occurrence: None)
  Receive Date: 20041207
  Receipt Date: 20041124
  Transmission Date: 20050328
  Serious: Yes (Other)
  Sender: FDA-Public Use
  Company Number: 2004241627CA

PATIENT
  Age: 30 Year
  Sex: Female
  Weight: 74.8 kg

DRUGS (3)
  1. MEDROXYPROGESTERONE ACETATE [Suspect]
     Indication: CONTRACEPTION
     Dosage: SEE IMAGE
     Route: 030
     Dates: start: 20030101, end: 20030101
  2. MEDROXYPROGESTERONE ACETATE [Suspect]
     Indication: CONTRACEPTION
     Dosage: SEE IMAGE
     Route: 030
     Dates: start: 20040921, end: 20040921
  3. GABAPENTIN [Concomitant]

REACTIONS (6)
  - AMENORRHOEA [None]
  - CERVICAL DYSPLASIA [None]
  - DRUG INEFFECTIVE [None]
  - METRORRHAGIA [None]
  - MULTIPLE SCLEROSIS [None]
  - WEIGHT INCREASED [None]
